FAERS Safety Report 7115908-6 (Version None)
Quarter: 2010Q4

REPORT INFORMATION
  Report Type: 
  Country: None (occurrence: None)
  Receive Date: 20101122
  Receipt Date: 20101118
  Transmission Date: 20110411
  Serious: Yes (Hospitalization, Other)
  Sender: FDA-Public Use
  Company Number: US-SHIRE-ALL1-2010-06088

PATIENT
  Sex: Male
  Weight: 79.819 kg

DRUGS (13)
  1. FOSRENOL [Suspect]
     Indication: HYPERPHOSPHATAEMIA
     Dosage: 1000 MG, OTHER(WITH EACH MEAL)
     Route: 048
     Dates: start: 20101001, end: 20101118
  2. ZOCOR [Concomitant]
     Indication: BLOOD CHOLESTEROL INCREASED
     Dosage: 20 MG, 1X/DAY:QD
     Route: 048
     Dates: start: 19900101
  3. GABAPENTIN [Concomitant]
     Indication: RESTLESS LEGS SYNDROME
     Dosage: 100 MG, 1X/DAY:QD
     Route: 048
     Dates: start: 20100801
  4. VITAMIN A [Concomitant]
     Indication: SUPPLEMENTATION THERAPY
     Dosage: 5000 MG, OTHER (MONTHLY INJECTION)
     Route: 065
     Dates: start: 20070101
  5. NEPHROVITE [Concomitant]
     Indication: SUPPLEMENTATION THERAPY
     Dosage: UNK MG, 1X/DAY:QD
     Route: 048
     Dates: start: 20070101
  6. PREDNISONE [Concomitant]
     Indication: GOUT
     Dosage: 5 MG, 1X/DAY:QD
     Route: 048
     Dates: start: 20090101
  7. UROXATRAL [Concomitant]
     Indication: CYSTITIS
     Dosage: 10 MG, 1X/DAY:QD
     Route: 048
     Dates: start: 20090101
  8. COUMADIN [Concomitant]
     Indication: ATRIAL FIBRILLATION
     Dosage: 4 MG, 1X/DAY:QD
     Route: 048
     Dates: start: 20060101
  9. PRILOSEC [Concomitant]
     Indication: GASTRIC HAEMORRHAGE
     Dosage: 10 MG, 1X/DAY:QD
     Route: 048
     Dates: start: 20050101
  10. HUMALOG [Concomitant]
     Indication: DIABETES MELLITUS
     Dosage: 11 IU, 1X/DAY:QD(IN THE MORNING)
     Route: 058
     Dates: start: 20000101
  11. HUMALOG [Concomitant]
     Dosage: 9 IU, 1X/DAY:QD((AT NIGHT)
     Route: 058
     Dates: start: 20000101
  12. LANTUS [Concomitant]
     Indication: DIABETES MELLITUS
     Dosage: 11 IU, 1X/DAY:QD(IN THE MORNING)
     Route: 058
     Dates: start: 20000101
  13. LANTUS [Concomitant]
     Dosage: 9 IU, 1X/DAY:QD(AT NIGHT)
     Route: 058
     Dates: start: 20000101

REACTIONS (5)
  - ARTERIOVENOUS FISTULA OCCLUSION [None]
  - DIABETIC NEUROPATHY [None]
  - FALL [None]
  - FATIGUE [None]
  - HEART RATE DECREASED [None]
